FAERS Safety Report 14025284 (Version 7)
Quarter: 2017Q4

REPORT INFORMATION
  Report Type: Spontaneous
  Country: KR (occurrence: KR)
  Receive Date: 20170929
  Receipt Date: 20171213
  Transmission Date: 20180321
  Serious: Yes (Death, Life-Threatening, Other)
  Sender: FDA-Public Use
  Company Number: KR-009507513-1709KOR013220

PATIENT
  Age: 62 Year
  Sex: Male
  Weight: 68.7 kg

DRUGS (14)
  1. NOXAFIL [Suspect]
     Active Substance: POSACONAZOLE
     Dosage: 300 MG, ONCE A DAY
     Route: 048
     Dates: start: 20170907, end: 20170924
  2. PENZAL ER [Concomitant]
     Indication: FEBRILE NEUTROPENIA
     Dosage: 1300 MG  QD
     Route: 048
     Dates: start: 20170905, end: 20170907
  3. PENNEL [Concomitant]
     Indication: LIVER DISORDER
     Dosage: 1 CAPSULE 3 TIMES A DAY
     Route: 048
     Dates: start: 20170905, end: 20170907
  4. URSA SOFT CAPS [Concomitant]
     Indication: LIVER DISORDER
     Dosage: 200 MG, THREE TIMES DAY
     Route: 048
     Dates: start: 20170906, end: 20170929
  5. SODIUM BICARBONATE. [Concomitant]
     Active Substance: SODIUM BICARBONATE
     Indication: PROPHYLAXIS
     Dosage: 20 ML, BID
     Route: 042
     Dates: start: 20170906, end: 20170906
  6. NOXAFIL [Suspect]
     Active Substance: POSACONAZOLE
     Indication: ANTIFUNGAL PROPHYLAXIS
     Dosage: 300 MG, TWICE A DAY
     Route: 048
     Dates: start: 20170906, end: 20170906
  7. MAXIPIME [Concomitant]
     Active Substance: CEFEPIME HYDROCHLORIDE
     Indication: FEBRILE NEUTROPENIA
     Dosage: 2 G, THREE TIMES A DAY
     Route: 042
     Dates: start: 20170905, end: 20170911
  8. ALLOPURINOL. [Concomitant]
     Active Substance: ALLOPURINOL
     Indication: HYPERURICAEMIA
     Dosage: 3 TABLETS, QD
     Route: 048
     Dates: start: 20170905, end: 20170913
  9. PENNEL [Concomitant]
     Indication: HEPATITIS TOXIC
  10. URSA SOFT CAPS [Concomitant]
     Indication: HEPATITIS TOXIC
  11. PENZAL ER [Concomitant]
     Dosage: 650 MG, QD
     Route: 048
     Dates: start: 20170908, end: 20170922
  12. LASIX [Concomitant]
     Active Substance: FUROSEMIDE
     Indication: PROPHYLAXIS
     Dosage: 20 MG ONCE DAILY
     Route: 042
     Dates: start: 20170906, end: 20170909
  13. MACPERAN [Concomitant]
     Active Substance: METOCLOPRAMIDE HYDROCHLORIDE
     Indication: PROPHYLAXIS OF NAUSEA AND VOMITING
     Dosage: 10 MG ONCE DAILY
     Route: 042
     Dates: start: 20170906, end: 20170914
  14. CYTOSAR [Concomitant]
     Active Substance: CYTARABINE
     Indication: ACUTE MYELOID LEUKAEMIA
     Dosage: 179 MG ONCE DAILY
     Route: 042
     Dates: start: 20170906, end: 20170912

REACTIONS (14)
  - Atrial fibrillation [Not Recovered/Not Resolved]
  - Hypotension [Recovered/Resolved]
  - Vomiting [Recovered/Resolved]
  - Pneumonia [Not Recovered/Not Resolved]
  - Pleural effusion [Not Recovered/Not Resolved]
  - Pneumonia [Fatal]
  - Conjunctival haemorrhage [Not Recovered/Not Resolved]
  - Generalised oedema [Not Recovered/Not Resolved]
  - Epistaxis [Recovered/Resolved]
  - Catheter site haemorrhage [Recovered/Resolved]
  - Petechiae [Not Recovered/Not Resolved]
  - Pulmonary oedema [Not Recovered/Not Resolved]
  - Skin exfoliation [Not Recovered/Not Resolved]
  - Hypertension [Recovered/Resolved]

NARRATIVE: CASE EVENT DATE: 20170906
